FAERS Safety Report 4605153-8 (Version None)
Quarter: 2005Q2

REPORT INFORMATION
  Report Type: 
  Country: None (occurrence: None)
  Receive Date: 20050222
  Receipt Date: 20040612
  Transmission Date: 20051028
  Serious: Yes (Hospitalization)
  Sender: FDA-Public Use
  Company Number: PHEH2004US06922

PATIENT

DRUGS (1)
  1. STARLIX [Suspect]
     Dosage: ORAL
     Route: 048

REACTIONS (1)
  - HYPOGLYCAEMIA [None]
